FAERS Safety Report 12110860 (Version 1)
Quarter: 2016Q1

REPORT INFORMATION
  Report Type: Spontaneous
  Country: US (occurrence: US)
  Receive Date: 20160224
  Receipt Date: 20160224
  Transmission Date: 20160526
  Serious: No
  Sender: FDA-Public Use
  Company Number: US-JAZZ-2015-US-005613

PATIENT
  Age: 73 Year
  Sex: Female

DRUGS (2)
  1. PRIALT [Suspect]
     Active Substance: ZICONOTIDE ACETATE
     Dosage: UNK ?G, QH
     Route: 037
     Dates: end: 2015
  2. MORPHINE SULFATE. [Suspect]
     Active Substance: MORPHINE SULFATE
     Dosage: UNK MG, QH
     Route: 037

REACTIONS (4)
  - Paranoia [Unknown]
  - Feeling abnormal [Unknown]
  - Hostility [Unknown]
  - Psychotic behaviour [Unknown]

NARRATIVE: CASE EVENT DATE: 201410
